FAERS Safety Report 5922590-X (Version None)
Quarter: 2008Q4

REPORT INFORMATION
  Report Type: 
  Country: None (occurrence: None)
  Receive Date: 20081017
  Receipt Date: 20081006
  Transmission Date: 20090506
  Serious: Yes (Hospitalization, Other)
  Sender: FDA-Public Use
  Company Number: JP-ROCHE-578734

PATIENT
  Sex: Female
  Weight: 52 kg

DRUGS (2)
  1. XELODA [Suspect]
     Indication: COLON CANCER
     Dosage: DRUG REPORTED AS XELODA 300, TWO WEEKS ADMINISTRATION FOLLOWED BY ONE WEEK REST
     Route: 048
     Dates: start: 20080424, end: 20080612
  2. XELODA [Suspect]
     Dosage: TWO WEEKS ADMINISTRATION FOLLOWED BY ONE WEEK REST
     Route: 048
     Dates: start: 20080601, end: 20080702

REACTIONS (5)
  - BLOOD TRIGLYCERIDES INCREASED [None]
  - INGROWING NAIL [None]
  - MALAISE [None]
  - PALMAR-PLANTAR ERYTHRODYSAESTHESIA SYNDROME [None]
  - PARONYCHIA [None]
